FAERS Safety Report 4905406-X (Version None)
Quarter: 2006Q1

REPORT INFORMATION
  Report Type: 
  Country: None (occurrence: None)
  Receive Date: 20060208
  Receipt Date: 20050801
  Transmission Date: 20060701
  Serious: Yes (Hospitalization, Other)
  Sender: FDA-Public Use
  Company Number: US-MERCK-0508USA00767

PATIENT
  Age: 74 Year
  Sex: Female
  Weight: 68 kg

DRUGS (4)
  1. VIOXX [Suspect]
     Indication: OSTEOARTHRITIS
     Route: 048
     Dates: start: 20000203, end: 20020205
  2. VIOXX [Suspect]
     Route: 048
     Dates: start: 20020206, end: 20020501
  3. VIOXX [Suspect]
     Indication: BACK PAIN
     Route: 048
     Dates: start: 20000203, end: 20020205
  4. VIOXX [Suspect]
     Route: 048
     Dates: start: 20020206, end: 20020501

REACTIONS (21)
  - BACK PAIN [None]
  - BLINDNESS [None]
  - BRONCHITIS [None]
  - CEREBRAL ATROPHY [None]
  - CEREBRAL INFARCTION [None]
  - CEREBRAL ISCHAEMIA [None]
  - CEREBROVASCULAR ACCIDENT [None]
  - DEHYDRATION [None]
  - DEMENTIA [None]
  - DRUG HYPERSENSITIVITY [None]
  - HEART RATE IRREGULAR [None]
  - HYPERTENSION [None]
  - INFECTION [None]
  - MENTAL STATUS CHANGES [None]
  - PAIN [None]
  - PRODUCTIVE COUGH [None]
  - PYELONEPHRITIS [None]
  - PYREXIA [None]
  - SYNCOPE [None]
  - URINARY TRACT INFECTION [None]
  - UROSEPSIS [None]
